FAERS Safety Report 18043269 (Version 3)
Quarter: 2021Q3

REPORT INFORMATION
  Report Type: Spontaneous
  Country: US (occurrence: US)
  Receive Date: 20200720
  Receipt Date: 20210706
  Transmission Date: 20211014
  Serious: Yes (Hospitalization, Other)
  Sender: FDA-Public Use
  Company Number: US-BAYER-2020-141515

PATIENT
  Age: 42 Year
  Sex: Female
  Weight: 105.22 kg

DRUGS (1)
  1. MIRENA [Suspect]
     Active Substance: LEVONORGESTREL
     Dosage: 20 ?G PER DAY CONTINUOUSLY
     Route: 015
     Dates: start: 2014, end: 20200710

REACTIONS (5)
  - Device breakage [Recovering/Resolving]
  - Device use issue [None]
  - Orgasm abnormal [Recovering/Resolving]
  - Complication of device removal [Recovering/Resolving]
  - Embedded device [Recovering/Resolving]

NARRATIVE: CASE EVENT DATE: 2020
